FAERS Safety Report 13815780 (Version 2)
Quarter: 2018Q1

REPORT INFORMATION
  Report Type: Spontaneous
  Country: AR (occurrence: AR)
  Receive Date: 20170731
  Receipt Date: 20180208
  Transmission Date: 20180508
  Serious: Yes (Other)
  Sender: FDA-Public Use
  Company Number: AR-AMGEN-ARGSP2017113941

PATIENT
  Age: 74 Year
  Sex: Female

DRUGS (1)
  1. ENBREL [Suspect]
     Active Substance: ETANERCEPT
     Indication: RHEUMATOID ARTHRITIS
     Dosage: 50 MG, WEEKLY
     Route: 065
     Dates: start: 20120926

REACTIONS (10)
  - Fall [Recovering/Resolving]
  - Colitis [Unknown]
  - Spinal fracture [Unknown]
  - Upper limb fracture [Unknown]
  - Malaise [Recovering/Resolving]
  - Gait inability [Recovering/Resolving]
  - Memory impairment [Recovering/Resolving]
  - Tachycardia [Recovering/Resolving]
  - Hypokinesia [Unknown]
  - Thrombosis [Recovering/Resolving]

NARRATIVE: CASE EVENT DATE: 201607
